FAERS Safety Report 7601941-4 (Version None)
Quarter: 2011Q3

REPORT INFORMATION
  Report Type: 
  Country: None (occurrence: None)
  Receive Date: 20110711
  Receipt Date: 20110111
  Transmission Date: 20111222
  Serious: Yes (Hospitalization, Other)
  Sender: FDA-Public Use
  Company Number: US-BAYER-200934797NA

PATIENT
  Age: 45 Year
  Sex: Male
  Weight: 98.413 kg

DRUGS (31)
  1. CIPROFLOXACIN HCL [Concomitant]
     Indication: PRODUCT USED FOR UNKNOWN INDICATION
     Dosage: 500 MG, BID
  2. DELTASONE [Concomitant]
     Dosage: 30 MG, QD
     Route: 048
  3. LOVENOX [Concomitant]
     Dosage: 30 MG, QD
     Route: 058
  4. XANAX [Concomitant]
     Indication: ANXIETY
     Dosage: 0.25 MG, UNK
     Dates: start: 20071013
  5. MEROPENEM [Concomitant]
     Indication: PRODUCT USED FOR UNKNOWN INDICATION
     Dosage: UNK
     Dates: start: 20071013
  6. LASIX [Concomitant]
     Indication: PRODUCT USED FOR UNKNOWN INDICATION
     Dosage: 40 MG, UNK
     Route: 042
     Dates: start: 20071013
  7. METHADONE HCL [Concomitant]
     Dosage: 30 MG, QD
  8. ATIVAN [Concomitant]
     Dosage: 0.5 MG TO 2 MG, EVERY FOUR HOURS
     Route: 042
  9. HEPARIN [Concomitant]
     Dosage: UNK
     Route: 042
     Dates: start: 20071013
  10. METHOTREXATE [Concomitant]
     Dosage: 12.5 MG, UNK
     Route: 048
  11. RIFAMPIN [Concomitant]
     Indication: PRODUCT USED FOR UNKNOWN INDICATION
     Dosage: UNK
     Dates: start: 20071011
  12. ALBUMIN (HUMAN) [Concomitant]
     Indication: PRODUCT USED FOR UNKNOWN INDICATION
     Dosage: UNK
     Dates: start: 20071013
  13. VANCOMYCIN [Concomitant]
     Indication: PRODUCT USED FOR UNKNOWN INDICATION
     Dosage: UNK
     Dates: start: 20071011
  14. VANCOMYCIN [Concomitant]
     Dosage: EVERY 12 HOURS
     Route: 042
     Dates: start: 20071013
  15. DEMEROL [Concomitant]
     Indication: PRODUCT USED FOR UNKNOWN INDICATION
     Dosage: 25 MG, UNK
     Route: 042
     Dates: start: 20071013
  16. PHENYLEPHRINE HCL [Concomitant]
     Indication: BLOOD PRESSURE MANAGEMENT
     Dosage: 40 ?G, PRE-OPERATIVELY
     Route: 042
  17. DRONABINOL [Concomitant]
     Indication: DECREASED APPETITE
  18. VERSED [Concomitant]
     Indication: PRODUCT USED FOR UNKNOWN INDICATION
     Dosage: 4 MG, UNK
     Route: 042
     Dates: start: 20071013
  19. LEVOPHED [Concomitant]
     Indication: PRODUCT USED FOR UNKNOWN INDICATION
     Dosage: 16 MCG/ML, UNK
     Route: 042
     Dates: start: 20071013
  20. COUMADIN [Concomitant]
     Dosage: 3 MG-4 MG
     Route: 048
  21. ISOVUE-370 [Concomitant]
     Indication: COMPUTERISED TOMOGRAM
     Dosage: UNK
     Dates: start: 20070713
  22. METHOTREXATE [Concomitant]
     Indication: PRODUCT USED FOR UNKNOWN INDICATION
     Dosage: 25 MG, OW
     Route: 030
  23. SOLU-CORTEF [Concomitant]
     Indication: PRODUCT USED FOR UNKNOWN INDICATION
     Dosage: 50 MG, UNK
     Route: 042
     Dates: start: 20071013, end: 20071017
  24. PROTAMINE SULFATE [Concomitant]
     Indication: PRODUCT USED FOR UNKNOWN INDICATION
     Dosage: 50 MG, UNK
     Route: 042
     Dates: start: 20071013
  25. MYLICON [Concomitant]
     Dosage: 80 MG, TID
     Route: 048
  26. MORPHINE [Concomitant]
     Dosage: 3 TO 4MG, EVERY TWO HOUR
     Route: 042
  27. TRASYLOL [Suspect]
     Indication: MITRAL VALVE REPLACEMENT
     Dosage: 200CC
     Dates: start: 20071013
  28. COUMADIN [Concomitant]
     Indication: DEEP VEIN THROMBOSIS
     Dosage: UNK
     Route: 048
     Dates: start: 20070101
  29. CEFEPIME [Concomitant]
     Indication: STAPHYLOCOCCUS TEST POSITIVE
     Dosage: 1 G, UNK
     Route: 042
     Dates: start: 20071008
  30. FLAGYL [Concomitant]
     Indication: STAPHYLOCOCCUS TEST POSITIVE
     Dosage: 500 MG, UNK
     Route: 042
     Dates: start: 20071008
  31. DRONABINOL [Concomitant]
     Indication: NAUSEA
     Dosage: 5 MG, TID
     Route: 048

REACTIONS (11)
  - EMOTIONAL DISTRESS [None]
  - RENAL INJURY [None]
  - SEPSIS [None]
  - RENAL FAILURE [None]
  - DEPRESSION [None]
  - NERVOUSNESS [None]
  - INJURY [None]
  - FEAR OF DEATH [None]
  - PAIN [None]
  - MULTI-ORGAN FAILURE [None]
  - ANXIETY [None]
